FAERS Safety Report 6542583-1 (Version None)
Quarter: 2010Q1

REPORT INFORMATION
  Report Type: 
  Country: None (occurrence: None)
  Receive Date: 20100119
  Receipt Date: 20100114
  Transmission Date: 20100710
  Serious: Yes (Hospitalization, Other)
  Sender: FDA-Public Use
  Company Number: FR-ABBOTT-10P-056-0619548-00

PATIENT
  Sex: Female

DRUGS (13)
  1. ISOPTIN [Suspect]
     Indication: HYPERTENSION
  2. TAHOR [Interacting]
     Indication: HYPERCHOLESTEROLAEMIA
     Dates: start: 20090101, end: 20090223
  3. LEVOFLOXACIN [Interacting]
     Indication: DRUG USE FOR UNKNOWN INDICATION
     Route: 048
     Dates: start: 20090113, end: 20090223
  4. FUCIDINE CAP [Interacting]
     Indication: DRUG USE FOR UNKNOWN INDICATION
     Dates: start: 20090113, end: 20090223
  5. TRIATEC [Concomitant]
     Indication: HYPERTENSION
  6. DAONIL [Concomitant]
     Indication: DIABETES MELLITUS
  7. LEVOTHYROXINE SODIUM [Concomitant]
     Indication: DRUG USE FOR UNKNOWN INDICATION
  8. PROCTOLOG [Concomitant]
     Indication: DRUG USE FOR UNKNOWN INDICATION
  9. SPECIAFOLDINE [Concomitant]
     Indication: DRUG USE FOR UNKNOWN INDICATION
  10. FUMAFER [Concomitant]
     Indication: DRUG USE FOR UNKNOWN INDICATION
  11. NEXIUM [Concomitant]
     Indication: DRUG USE FOR UNKNOWN INDICATION
  12. FORADIL [Concomitant]
     Indication: ASTHMA
  13. SPIRIVA [Concomitant]
     Indication: ASTHMA

REACTIONS (4)
  - DRUG INTERACTION [None]
  - HIP ARTHROPLASTY [None]
  - RHABDOMYOLYSIS [None]
  - STAPHYLOCOCCAL INFECTION [None]
